FAERS Safety Report 9391171 (Version 1)
Quarter: 2013Q3

REPORT INFORMATION
  Report Type: Spontaneous
  Country: FR (occurrence: FR)
  Receive Date: 20130709
  Receipt Date: 20130709
  Transmission Date: 20140515
  Serious: Yes (Death)
  Sender: FDA-Public Use
  Company Number: FR-SANOFI-AVENTIS-2013SA067142

PATIENT
  Age: 61 Year
  Sex: Male

DRUGS (5)
  1. DAONIL [Suspect]
     Indication: DIABETES MELLITUS
     Route: 048
  2. PERINDOPRIL [Suspect]
     Indication: HYPERTENSION
     Route: 048
     Dates: end: 20130529
  3. PERINDOPRIL [Suspect]
     Indication: HYPERTENSION
     Route: 048
     Dates: start: 20130530, end: 20130531
  4. PERINDOPRIL [Suspect]
     Indication: HYPERTENSION
     Route: 048
     Dates: start: 20130601
  5. GLUCOPHAGE [Suspect]
     Indication: DIABETES MELLITUS
     Route: 048

REACTIONS (6)
  - Renal failure acute [Fatal]
  - Blood creatinine increased [Fatal]
  - Creatinine renal clearance decreased [Fatal]
  - Bradycardia [Fatal]
  - Circulatory collapse [Fatal]
  - Cardiac arrest [Fatal]
